FAERS Safety Report 5583076-8 (Version None)
Quarter: 2008Q1

REPORT INFORMATION
  Report Type: 
  Country: None (occurrence: None)
  Receive Date: 20080107
  Receipt Date: 20080103
  Transmission Date: 20080703
  Serious: Yes (Hospitalization)
  Sender: FDA-Public Use
  Company Number: B0501718A

PATIENT
  Age: 21 Year
  Sex: Female
  Weight: 103 kg

DRUGS (3)
  1. COMBIVIR [Suspect]
     Indication: ANTIVIRAL PROPHYLAXIS
     Route: 048
     Dates: start: 20071127
  2. NEVIRAPINE [Suspect]
     Indication: ANTIVIRAL PROPHYLAXIS
     Dosage: 200MG TWICE PER DAY
     Route: 048
     Dates: start: 20071127
  3. COTRIM [Concomitant]

REACTIONS (5)
  - ABDOMINAL PAIN LOWER [None]
  - ANTEPARTUM HAEMORRHAGE [None]
  - INTRA-UTERINE DEATH [None]
  - PRE-ECLAMPSIA [None]
  - VAGINAL HAEMORRHAGE [None]
